FAERS Safety Report 6085897-4 (Version None)
Quarter: 2009Q1

REPORT INFORMATION
  Report Type: 
  Country: None (occurrence: None)
  Receive Date: 20090217
  Receipt Date: 20090217
  Transmission Date: 20090719
  Serious: Yes (Other)
  Sender: FDA-Public Use
  Company Number: None

PATIENT
  Age: 71 Year
  Sex: Male
  Weight: 81.6475 kg

DRUGS (1)
  1. QVAR 40 [Suspect]
     Indication: HYPERSENSITIVITY
     Dosage: 2 PUFFS 2 X DAY PO
     Route: 048
     Dates: start: 20081115, end: 20090215

REACTIONS (3)
  - DYSPHONIA [None]
  - RHINORRHOEA [None]
  - THROAT IRRITATION [None]
